FAERS Safety Report 23134065 (Version 1)
Quarter: 2023Q4

REPORT INFORMATION
  Report Type: Report from Study
  Country: US (occurrence: US)
  Receive Date: 20231101
  Receipt Date: 20231101
  Transmission Date: 20240110
  Serious: Yes (Other)
  Sender: FDA-Public Use
  Company Number: US-OTTER-US-2023AST000482

PATIENT
  Sex: Female

DRUGS (1)
  1. OTREXUP [Suspect]
     Active Substance: METHOTREXATE
     Indication: Rheumatoid arthritis
     Dosage: 15 MG, WEEKLY
     Route: 058
     Dates: start: 20220117

REACTIONS (6)
  - Adrenal gland cancer [Unknown]
  - Phaeochromocytoma [Unknown]
  - Rheumatoid arthritis [Unknown]
  - Palpitations [Unknown]
  - Hypertension [Unknown]
  - Heart rate increased [Unknown]
